FAERS Safety Report 5134743-1 (Version None)
Quarter: 2006Q4

REPORT INFORMATION
  Report Type: 
  Country: None (occurrence: None)
  Receive Date: 20061025
  Receipt Date: 20060817
  Transmission Date: 20070319
  Serious: Yes (Death, Other)
  Sender: FDA-Public Use
  Company Number: GB-AMGEN-UK190519

PATIENT
  Age: 23 Year
  Sex: Male

DRUGS (1)
  1. MIMPARA [Suspect]
     Indication: HYPERPARATHYROIDISM SECONDARY
     Dates: start: 20060101

REACTIONS (4)
  - BLOOD CALCIUM ABNORMAL [None]
  - CARDIAC FAILURE [None]
  - HYPERCALCAEMIC NEPHROPATHY [None]
  - HYPOTENSION [None]
